FAERS Safety Report 14441540 (Version 2)
Quarter: 2018Q1

REPORT INFORMATION
  Report Type: Spontaneous
  Country: CN (occurrence: CN)
  Receive Date: 20180125
  Receipt Date: 20180129
  Transmission Date: 20180509
  Serious: Yes (Other)
  Sender: FDA-Public Use
  Company Number: CN-PFIZER INC-2018033273

PATIENT
  Age: 73 Year
  Sex: Female

DRUGS (12)
  1. LYRICA [Suspect]
     Active Substance: PREGABALIN
     Indication: POST HERPETIC NEURALGIA
     Dosage: 150 MG, 2X/DAY
     Route: 048
     Dates: start: 20180109
  2. LYRICA [Suspect]
     Active Substance: PREGABALIN
     Dosage: 2 DF IN THE MORNING
     Route: 048
     Dates: start: 20180121, end: 20180121
  3. SU WEI [Concomitant]
     Indication: IMMUNE SYSTEM DISORDER
     Dosage: 1 MG, 1X/DAY
     Route: 042
     Dates: start: 20180109, end: 20180115
  4. LYRICA [Suspect]
     Active Substance: PREGABALIN
     Dosage: 2 DF, 3X/DAY
     Route: 048
     Dates: start: 20180119, end: 20180120
  5. VITAMIN B1 [Concomitant]
     Active Substance: THIAMINE HYDROCHLORIDE
     Indication: NUTRITIONAL SUPPLEMENTATION
     Dosage: 0.1 G, 1X/DAY
     Route: 030
     Dates: start: 20180109, end: 20180115
  6. IBUPROFEN AND CODEINE PHOSPHATE [Concomitant]
     Indication: PAIN
     Dosage: 2 DF, SINGLE
     Route: 048
     Dates: start: 20180120, end: 20180120
  7. STRONGER NEO MINOPHAGEN C [Concomitant]
     Indication: INFLAMMATION
     Dosage: 60 ML, 1X/DAY
     Route: 042
     Dates: start: 20180109, end: 20180115
  8. YUAN RUI [Concomitant]
     Indication: INFECTION
     Dosage: 0.5 G, UNK
     Route: 048
     Dates: start: 20180109
  9. LYRICA [Suspect]
     Active Substance: PREGABALIN
     Dosage: 2 DF, DAILY AT NIGHT
     Route: 048
     Dates: start: 20180118, end: 20180118
  10. LYRICA [Suspect]
     Active Substance: PREGABALIN
     Dosage: 6-8 DFS, DAILY
     Route: 048
     Dates: start: 201801, end: 201801
  11. TRAMADOL. [Concomitant]
     Active Substance: TRAMADOL
     Indication: PAIN
     Dosage: 50 MG (0.5 DF), 2X/DAY
     Route: 048
     Dates: start: 20180110
  12. VITAMIN B12 [Concomitant]
     Active Substance: CYANOCOBALAMIN
     Indication: NUTRITIONAL SUPPLEMENTATION
     Dosage: 500 UG, 1X/DAY
     Route: 030
     Dates: start: 20180109, end: 20180115

REACTIONS (1)
  - Respiratory failure [Recovering/Resolving]

NARRATIVE: CASE EVENT DATE: 20180114
